FAERS Safety Report 25034599 (Version 1)
Quarter: 2025Q1

REPORT INFORMATION
  Report Type: Spontaneous
  Country: US (occurrence: US)
  Receive Date: 20250304
  Receipt Date: 20250304
  Transmission Date: 20250408
  Serious: No
  Sender: AUROBINDO
  Company Number: US-AUROBINDO-AUR-APL-2024-032041

PATIENT

DRUGS (1)
  1. LETROZOLE [Suspect]
     Active Substance: LETROZOLE
     Indication: Product used for unknown indication
     Route: 065

REACTIONS (7)
  - Bone disorder [Unknown]
  - Dry skin [Unknown]
  - Pruritus [Unknown]
  - Papule [Unknown]
  - Postmenopause [Unknown]
  - Skin exfoliation [Unknown]
  - Product quality issue [Unknown]
